FAERS Safety Report 4452829-1 (Version None)
Quarter: 2004Q3

REPORT INFORMATION
  Report Type: 
  Country: None (occurrence: None)
  Receive Date: 20040813
  Receipt Date: 20040428
  Transmission Date: 20050211
  Serious: No
  Sender: FDA-Public Use
  Company Number: S04-USA-03275-01

PATIENT
  Age: 76 Year
  Sex: Female

DRUGS (7)
  1. NAMENDA [Suspect]
     Indication: DEMENTIA ALZHEIMER'S TYPE
     Dosage: 10 MG QD PO
     Route: 048
     Dates: start: 20040424
  2. NAMENDA [Suspect]
     Indication: DEMENTIA ALZHEIMER'S TYPE
     Dosage: 5 MG QD PO
     Route: 048
     Dates: start: 20040417, end: 20040423
  3. PRANDIN [Concomitant]
  4. NORVASC [Concomitant]
  5. COZAAR [Concomitant]
  6. LIPITOR [Concomitant]
  7. ARICEPT [Concomitant]

REACTIONS (1)
  - BLOOD GLUCOSE INCREASED [None]
